FAERS Safety Report 11632674 (Version 2)
Quarter: 2015Q4

REPORT INFORMATION
  Report Type: Spontaneous
  Country: TN (occurrence: TN)
  Receive Date: 20151015
  Receipt Date: 20151105
  Transmission Date: 20160304
  Serious: No
  Sender: FDA-Public Use
  Company Number: TN-NOVOPROD-467149

PATIENT
  Age: 61 Year
  Sex: Female
  Weight: 85 kg

DRUGS (5)
  1. LOPRIL                             /00498401/ [Concomitant]
     Active Substance: CAPTOPRIL
     Dosage: UNK (1/2 TABLET X 3/DAY)
     Dates: start: 2007
  2. GLUCOPHAGE [Concomitant]
     Active Substance: METFORMIN HYDROCHLORIDE
     Dosage: UNK (1/DAY)
     Dates: start: 2007
  3. TORVA                              /01326102/ [Concomitant]
     Dosage: UNK (1/DAY)
     Dates: start: 2010
  4. ISOPHANE INSULIN [Suspect]
     Active Substance: INSULIN NOS
     Indication: TYPE 2 DIABETES MELLITUS
     Dosage: 16 U, QD
     Route: 065
     Dates: start: 20150625, end: 20150920
  5. ASPEGIC [Concomitant]
     Active Substance: ASPIRIN DL-LYSINE
     Dosage: UNK (1 SACHE/DAY)
     Dates: start: 2009

REACTIONS (4)
  - Generalised erythema [Recovered/Resolved]
  - Localised oedema [Recovered/Resolved]
  - Pruritus generalised [Recovered/Resolved]
  - Injection site pruritus [Recovered/Resolved]

NARRATIVE: CASE EVENT DATE: 201506
